FAERS Safety Report 20056488 (Version 2)
Quarter: 2021Q4

REPORT INFORMATION
  Report Type: Spontaneous
  Country: BH (occurrence: BH)
  Receive Date: 20211111
  Receipt Date: 20211209
  Transmission Date: 20220303
  Serious: Yes (Other)
  Sender: FDA-Public Use
  Company Number: BH-LUPIN PHARMACEUTICALS INC.-2021-21797

PATIENT
  Age: 38 Year
  Sex: Female

DRUGS (7)
  1. METHERGINE [Suspect]
     Active Substance: METHYLERGONOVINE MALEATE
     Indication: Labour induction
     Dosage: 0.2 MILLIGRAM
     Route: 030
  2. MISOPROSTOL [Suspect]
     Active Substance: MISOPROSTOL
     Indication: Labour induction
     Dosage: 800 MICROGRAM
     Route: 054
  3. IRON SUCROSE [Suspect]
     Active Substance: IRON SUCROSE
     Indication: Haemoglobin decreased
     Dosage: UNK
     Route: 065
  4. SYNTOCINON [Suspect]
     Active Substance: OXYTOCIN
     Indication: Postpartum haemorrhage
     Dosage: 20 UNITS OF OXYTOCIN IN 1 L RINGER LACTATE WAS TRANSFUSED AT A RATE OF 125 ML/HOUR.
     Route: 065
  5. SYNTOCINON [Suspect]
     Active Substance: OXYTOCIN
     Indication: Labour induction
  6. LACTATED RINGERS SOLUTION [Suspect]
     Active Substance: CALCIUM CHLORIDE\POTASSIUM CHLORIDE\SODIUM CHLORIDE\SODIUM LACTATE
     Indication: Postpartum haemorrhage
     Dosage: 20 UNITS OF OXYTOCIN IN 1 L RINGER LACTATE WAS TRANSFUSED AT A RATE OF 125 ML/HOUR.
     Route: 065
  7. LACTATED RINGERS SOLUTION [Suspect]
     Active Substance: CALCIUM CHLORIDE\POTASSIUM CHLORIDE\SODIUM CHLORIDE\SODIUM LACTATE
     Indication: Labour induction
     Dosage: 40 UNITS OF OXYTOCIN IN 500ML RINGER LACTATE AT THE RATE OF 125ML/HOUR
     Route: 065

REACTIONS (3)
  - Postpartum haemorrhage [Unknown]
  - Maternal exposure during delivery [Unknown]
  - Normal newborn [Unknown]
